FAERS Safety Report 12630382 (Version 3)
Quarter: 2016Q4

REPORT INFORMATION
  Report Type: Spontaneous
  Country: DE (occurrence: DE)
  Receive Date: 20160808
  Receipt Date: 20161014
  Transmission Date: 20170207
  Serious: Yes (Other)
  Sender: FDA-Public Use
  Company Number: DE-PFIZER INC-2016117965

PATIENT
  Age: 76 Year
  Sex: Female

DRUGS (3)
  1. TAVOR (LORAZEPAM) [Suspect]
     Active Substance: LORAZEPAM
     Indication: DEPRESSION
     Dosage: 1 MG, DAILY, MORNING
     Dates: start: 1975
  2. TAVOR (LORAZEPAM) [Suspect]
     Active Substance: LORAZEPAM
     Indication: FEAR
     Dosage: 1.0 MG PLUS 1/ TABLETS AT NOON
  3. TAVOR (LORAZEPAM) [Suspect]
     Active Substance: LORAZEPAM
     Indication: ANXIETY
     Dosage: 1 MG, 2X/DAY
     Dates: start: 20160903

REACTIONS (6)
  - Mental impairment [Unknown]
  - Drug dependence [Recovering/Resolving]
  - Osteoporosis [Not Recovered/Not Resolved]
  - Suicidal ideation [Unknown]
  - Nervousness [Not Recovered/Not Resolved]
  - Intentional self-injury [Unknown]
